FAERS Safety Report 16275753 (Version 1)
Quarter: 2019Q2

REPORT INFORMATION
  Report Type: Spontaneous
  Country: US (occurrence: US)
  Receive Date: 20190506
  Receipt Date: 20190506
  Transmission Date: 20190711
  Serious: Yes (Hospitalization, Other)
  Sender: FDA-Public Use
  Company Number: US-GLAXOSMITHKLINE-US2019AMR078072

PATIENT
  Sex: Male

DRUGS (1)
  1. BREO ELLIPTA [Suspect]
     Active Substance: FLUTICASONE FUROATE\VILANTEROL TRIFENATATE
     Indication: PRODUCT USED FOR UNKNOWN INDICATION
     Dosage: UNK
     Route: 055
     Dates: start: 2016

REACTIONS (7)
  - Malaise [Unknown]
  - Treatment noncompliance [Unknown]
  - Pneumonitis [Unknown]
  - Intentional product misuse [Unknown]
  - Dyspnoea [Unknown]
  - Bronchitis [Unknown]
  - Pulmonary oedema [Unknown]
